FAERS Safety Report 10023696 (Version 2)
Quarter: 2014Q2

REPORT INFORMATION
  Report Type: Spontaneous
  Country: FR (occurrence: FR)
  Receive Date: 20140320
  Receipt Date: 20140530
  Transmission Date: 20141212
  Serious: Yes (Hospitalization)
  Sender: FDA-Public Use
  Company Number: FR-JNJFOC-20140308266

PATIENT
  Age: 82 Year
  Sex: Male

DRUGS (17)
  1. RISPERDAL [Suspect]
     Indication: AGITATION
     Route: 048
     Dates: start: 20140124
  2. RISPERDAL [Suspect]
     Indication: AGITATION
     Dosage: 1 TO 2MG PER DAY
     Route: 048
     Dates: start: 20140123
  3. RISPERDAL [Suspect]
     Indication: AGITATION
     Route: 048
     Dates: start: 20140130, end: 20140201
  4. HALDOL [Suspect]
     Indication: AGITATION
     Dosage: 8 DROPS
     Route: 048
     Dates: start: 20140126
  5. HALDOL [Suspect]
     Indication: AGITATION
     Route: 048
     Dates: start: 20140130, end: 20140131
  6. IMOVANE [Suspect]
     Indication: AGITATION
     Route: 065
     Dates: start: 20140114, end: 20140201
  7. INEGY [Concomitant]
     Route: 065
  8. CORDARONE [Concomitant]
     Route: 066
  9. ALLOPURINOL [Concomitant]
     Route: 065
  10. FORLAX [Concomitant]
     Route: 065
  11. CALCIPARINE [Concomitant]
     Route: 065
  12. DISCOTRINE [Concomitant]
     Route: 065
  13. SPIRIVA [Concomitant]
     Route: 065
  14. INEXIUM [Concomitant]
     Route: 065
  15. DIAMICRON [Concomitant]
     Route: 065
  16. LASILIX [Concomitant]
     Indication: PRODUCT USED FOR UNKNOWN INDICATION
     Route: 065
  17. OMEXEL [Concomitant]
     Indication: PRODUCT USED FOR UNKNOWN INDICATION
     Route: 065

REACTIONS (5)
  - Coma [Recovered/Resolved]
  - Bradycardia [Recovered/Resolved]
  - Bradypnoea [Recovered/Resolved]
  - Hypothermia [Recovered/Resolved]
  - Somnolence [Unknown]
